FAERS Safety Report 25377422 (Version 4)
Quarter: 2025Q3

REPORT INFORMATION
  Report Type: Spontaneous
  Country: US (occurrence: US)
  Receive Date: 20250530
  Receipt Date: 20250924
  Transmission Date: 20251020
  Serious: No
  Sender: SANOFI AVENTIS
  Company Number: US-SA-2025SA153490

PATIENT
  Age: 52 Year
  Sex: Female

DRUGS (1)
  1. KEVZARA [Suspect]
     Active Substance: SARILUMAB
     Indication: Rheumatoid arthritis
     Dosage: 200 MG, QOW
     Route: 058
     Dates: start: 202505

REACTIONS (6)
  - Illness [Unknown]
  - Rash [Unknown]
  - Dry skin [Unknown]
  - Sinusitis [Unknown]
  - Otitis media [Unknown]
  - Infection [Unknown]

NARRATIVE: CASE EVENT DATE: 20250101
